FAERS Safety Report 14127365 (Version 1)
Quarter: 2017Q4

REPORT INFORMATION
  Report Type: Spontaneous
  Country: US (occurrence: US)
  Receive Date: 20171026
  Receipt Date: 20171026
  Transmission Date: 20180321
  Serious: No
  Sender: FDA-Public Use
  Company Number: US-TEVA-730939ACC

PATIENT
  Sex: Male

DRUGS (1)
  1. CARBIDOPA AND LEVODOPA [Suspect]
     Active Substance: CARBIDOPA\LEVODOPA
     Dosage: CARBIDOPA/LEVODOPA : 25/100 MG
     Dates: start: 20161025

REACTIONS (5)
  - Extra dose administered [Unknown]
  - Dyskinesia [Unknown]
  - Muscle spasms [Unknown]
  - Dyspnoea [Unknown]
  - Dystonia [Unknown]
